FAERS Safety Report 7409823 (Version 6)
Quarter: 2020Q3

REPORT INFORMATION
  Report Type: Report from Study
  Country: ZA (occurrence: ZA)
  Receive Date: 20100604
  Receipt Date: 20100923
  Transmission Date: 20201104
  Serious: Yes (Life-Threatening, Hospitalization)
  Sender: FDA-Public Use
  Company Number: ZA-WYE-H15452510

PATIENT
  Age: 59 Year
  Sex: Female
  Weight: 72 kg

DRUGS (12)
  1. LAPATINIB [Suspect]
     Active Substance: LAPATINIB
     Indication: BREAST CANCER METASTATIC
     Route: 048
     Dates: start: 20100429, end: 20100508
  2. CAPECITABINE. [Suspect]
     Active Substance: CAPECITABINE
     Dosage: 1800MG TWICE DAILY DAYS 1?14 OF CYCLE
     Route: 048
     Dates: start: 20100429, end: 20100508
  3. ACETYLSALICYLIC ACID [Concomitant]
     Active Substance: ASPIRIN
     Indication: PROPHYLAXIS
     Dosage: UNKNOWN
     Route: 048
     Dates: start: 20100429
  4. CO?DIOVAN [Suspect]
     Active Substance: HYDROCHLOROTHIAZIDE\VALSARTAN
     Indication: HYPERTENSION
     Dosage: UNKNOWN
     Route: 048
     Dates: start: 2008, end: 20100517
  5. BISOPROLOL FUMARATE. [Suspect]
     Active Substance: BISOPROLOL FUMARATE
     Indication: HYPERTENSION
     Dosage: UNKNOWN
     Route: 048
     Dates: start: 2008, end: 20100517
  6. CAPECITABINE. [Suspect]
     Active Substance: CAPECITABINE
     Indication: BREAST CANCER METASTATIC
     Dosage: 1450 MG TWICE DAILY DAYS 1?14 OF CYCLE
     Route: 048
     Dates: start: 20100510, end: 20100516
  7. BISOPROLOL FUMARATE. [Suspect]
     Active Substance: BISOPROLOL FUMARATE
     Dosage: UNKNOWN
     Route: 048
     Dates: start: 20100531
  8. CO?DIOVAN [Suspect]
     Active Substance: HYDROCHLOROTHIAZIDE\VALSARTAN
     Dosage: UNKNOWN
     Route: 048
     Dates: start: 20100521, end: 20100526
  9. BISOPROLOL FUMARATE. [Suspect]
     Active Substance: BISOPROLOL FUMARATE
     Dosage: UNKNOWN
     Route: 048
     Dates: start: 20100521, end: 20100526
  10. LEVOTHYROXINE SODIUM. [Concomitant]
     Active Substance: LEVOTHYROXINE SODIUM
     Indication: HYPOTHYROIDISM
     Dosage: UNKNOWN
     Route: 048
     Dates: start: 1985
  11. LAPATINIB [Suspect]
     Active Substance: LAPATINIB
     Route: 048
     Dates: start: 20100510, end: 20100516
  12. PARACETAMOL [Concomitant]
     Active Substance: ACETAMINOPHEN
     Indication: BACK PAIN
     Dosage: UNKNOWN
     Route: 048
     Dates: start: 1985

REACTIONS (3)
  - Neutropenia [Recovered/Resolved]
  - Hypotension [Recovered/Resolved]
  - Dizziness [Recovered/Resolved]

NARRATIVE: CASE EVENT DATE: 20100517
